FAERS Safety Report 4375058-9 (Version None)
Quarter: 2004Q2

REPORT INFORMATION
  Report Type: 
  Country: None (occurrence: None)
  Receive Date: 20040603
  Receipt Date: 20040521
  Transmission Date: 20050107
  Serious: Yes (Other)
  Sender: FDA-Public Use
  Company Number: 206711

PATIENT
  Age: 66 Year
  Sex: Female

DRUGS (5)
  1. RITUXAN [Suspect]
     Indication: NON-HODGKIN'S LYMPHOMA
     Dosage: 550 MG, 1/WEEK, INTRAVENOUS; 500 MG, IV; 500 MG, IV;  500 MG, IV
     Route: 042
     Dates: start: 20030129, end: 20030129
  2. RITUXAN [Suspect]
     Indication: NON-HODGKIN'S LYMPHOMA
     Dosage: 550 MG, 1/WEEK, INTRAVENOUS; 500 MG, IV; 500 MG, IV;  500 MG, IV
     Route: 042
     Dates: start: 20030205, end: 20030205
  3. RITUXAN [Suspect]
     Indication: NON-HODGKIN'S LYMPHOMA
     Dosage: 550 MG, 1/WEEK, INTRAVENOUS; 500 MG, IV; 500 MG, IV;  500 MG, IV
     Route: 042
     Dates: start: 20030212, end: 20030212
  4. RITUXAN [Suspect]
     Indication: NON-HODGKIN'S LYMPHOMA
     Dosage: 550 MG, 1/WEEK, INTRAVENOUS; 500 MG, IV; 500 MG, IV;  500 MG, IV
     Route: 042
     Dates: start: 20030122
  5. DEXCHLORPHENIRAMINE (DEXCHLORPHENIRAMINE MALEATE) [Concomitant]

REACTIONS (5)
  - DISEASE RECURRENCE [None]
  - DRUG EFFECT DECREASED [None]
  - NEUTROPENIA [None]
  - NON-HODGKIN'S LYMPHOMA [None]
  - WHITE BLOOD CELL COUNT DECREASED [None]
